FAERS Safety Report 7702386-9 (Version None)
Quarter: 2011Q3

REPORT INFORMATION
  Report Type: 
  Country: None (occurrence: None)
  Receive Date: 20110822
  Receipt Date: 20110818
  Transmission Date: 20111222
  Serious: Yes (Hospitalization)
  Sender: FDA-Public Use
  Company Number: US-GILEAD-2011-0042589

PATIENT
  Sex: Female
  Weight: 85.73 kg

DRUGS (13)
  1. FUROSEMIDE [Concomitant]
     Indication: CARDIAC FAILURE ACUTE
  2. ALPRAZOLAM [Concomitant]
     Indication: INSOMNIA
  3. COMBIVENT [Concomitant]
     Indication: BRONCHOSPASM
  4. OXYCODONE HCL [Concomitant]
  5. FERROUS GLUCONATE [Concomitant]
     Indication: IRON DEFICIENCY ANAEMIA
  6. REVATIO [Concomitant]
     Indication: PULMONARY ARTERIAL HYPERTENSION
  7. LOPERAMIDE HCL [Concomitant]
     Indication: DIARRHOEA
  8. LETAIRIS [Suspect]
     Indication: PULMONARY HYPERTENSION
     Route: 048
     Dates: start: 20110117
  9. METOCLOPRAMIDE [Concomitant]
     Indication: NAUSEA
  10. POTASSIUM CHLORIDE [Concomitant]
     Indication: HYPOKALAEMIA
  11. SERTRALINE HYDROCHLORIDE [Concomitant]
     Indication: DEPRESSION
  12. REMODULIN [Concomitant]
     Indication: PULMONARY ARTERIAL HYPERTENSION
  13. DIGOXIN [Concomitant]
     Indication: CARDIAC FAILURE CHRONIC

REACTIONS (2)
  - FLUID RETENTION [None]
  - INFECTION [None]
